FAERS Safety Report 13403871 (Version 1)
Quarter: 2017Q2

REPORT INFORMATION
  Report Type: Spontaneous
  Country: US (occurrence: US)
  Receive Date: 20170405
  Receipt Date: 20170405
  Transmission Date: 20170830
  Serious: No
  Sender: FDA-Public Use
  Company Number: None

PATIENT

DRUGS (2)
  1. PAROXETINE HCL [Suspect]
     Active Substance: PAROXETINE HYDROCHLORIDE
  2. BUPROPION XL [Suspect]
     Active Substance: BUPROPION
     Route: 048

REACTIONS (2)
  - Drug dispensing error [None]
  - Wrong drug administered [None]
